FAERS Safety Report 9028813 (Version 6)
Quarter: 2016Q2

REPORT INFORMATION
  Report Type: Spontaneous
  Country: US (occurrence: US)
  Receive Date: 20130124
  Receipt Date: 20160523
  Transmission Date: 20160815
  Serious: Yes (Hospitalization, Other)
  Sender: FDA-Public Use
  Company Number: US-009507513-1301USA010312

PATIENT
  Sex: Female
  Weight: 72.56 kg

DRUGS (4)
  1. ALENDRONATE SODIUM. [Suspect]
     Active Substance: ALENDRONATE SODIUM
     Indication: OSTEOPOROSIS POSTMENOPAUSAL
     Dosage: 70 MG, UNKNOWN
     Route: 048
     Dates: start: 20080129, end: 20101025
  2. FOSAMAX [Suspect]
     Active Substance: ALENDRONATE SODIUM
     Indication: OSTEOPENIA
     Dosage: 70 MG, QW
     Route: 048
     Dates: start: 200101, end: 200406
  3. SYNTHROID [Concomitant]
     Active Substance: LEVOTHYROXINE SODIUM
     Indication: HYPOTHYROIDISM
     Dosage: UNK, UNKNOWN
     Route: 048
     Dates: start: 20060116, end: 20110110
  4. FOSAMAX [Suspect]
     Active Substance: ALENDRONATE SODIUM
     Indication: OSTEOPOROSIS POSTMENOPAUSAL
     Dosage: 10 MG, QD
     Route: 048
     Dates: start: 199512, end: 200101

REACTIONS (42)
  - Muscle disorder [Unknown]
  - Spinal operation [Unknown]
  - Vaginal infection [Unknown]
  - Tenosynovitis [Recovered/Resolved]
  - Breast reconstruction [Unknown]
  - Cholecystectomy [Unknown]
  - Influenza [Unknown]
  - Salpingo-oophorectomy bilateral [Unknown]
  - Fall [Unknown]
  - Mastectomy [Unknown]
  - Ankle operation [Unknown]
  - Stress urinary incontinence [Unknown]
  - Musculoskeletal pain [Recovered/Resolved]
  - Gait disturbance [Unknown]
  - Compression fracture [Recovering/Resolving]
  - Malignant melanoma [Recovered/Resolved]
  - Low turnover osteopathy [Unknown]
  - Hypertension [Unknown]
  - Urinary incontinence [Unknown]
  - Hysterectomy [Unknown]
  - Tonsillar disorder [Unknown]
  - Pain [Unknown]
  - Skin disorder [Unknown]
  - Infection [Unknown]
  - Cough [Unknown]
  - Vitamin B12 deficiency [Unknown]
  - Oestrogen deficiency [Unknown]
  - Arthralgia [Unknown]
  - Femur fracture [Unknown]
  - Wheezing [Unknown]
  - Atrophy [Unknown]
  - Arthritis [Unknown]
  - Thoracic vertebral fracture [Unknown]
  - Osteoarthritis [Unknown]
  - Deep vein thrombosis [Unknown]
  - Activities of daily living impaired [Unknown]
  - Intramedullary rod insertion [Unknown]
  - Bone disorder [Unknown]
  - Inflammation [Unknown]
  - Ankle fracture [Unknown]
  - Fall [Unknown]
  - Spinal column stenosis [Unknown]

NARRATIVE: CASE EVENT DATE: 1996
